FAERS Safety Report 4974184-0 (Version None)
Quarter: 2006Q2

REPORT INFORMATION
  Report Type: 
  Country: None (occurrence: None)
  Receive Date: 20060417
  Receipt Date: 20050222
  Transmission Date: 20061013
  Serious: Yes (Hospitalization, Disabling)
  Sender: FDA-Public Use
  Company Number: US-MERCK-0502USA03186

PATIENT
  Age: 63 Year
  Sex: Male
  Weight: 100 kg

DRUGS (25)
  1. CLARINEX [Concomitant]
     Route: 065
  2. CYCLOBENZAPRINE HYDROCHLORIDE [Concomitant]
     Route: 065
     Dates: start: 20040101
  3. CYCLOBENZAPRINE HYDROCHLORIDE [Concomitant]
     Route: 065
  4. PRAVACHOL [Concomitant]
     Indication: HYPERLIPIDAEMIA
     Route: 065
  5. METHOCARBAMOL [Concomitant]
     Route: 065
     Dates: start: 20040101
  6. OXYCONTIN [Concomitant]
     Route: 065
     Dates: start: 20040801
  7. LIPITOR [Concomitant]
     Route: 065
  8. DARVOCET [Concomitant]
     Route: 065
  9. VIOXX [Suspect]
     Indication: BACK PAIN
     Route: 048
     Dates: start: 20021201, end: 20040101
  10. VIOXX [Suspect]
     Indication: SHOULDER PAIN
     Route: 048
     Dates: start: 20021201, end: 20040101
  11. ZOCOR [Concomitant]
     Route: 048
  12. NEXIUM [Concomitant]
     Route: 065
  13. AMBIEN [Concomitant]
     Route: 065
  14. XANAX [Concomitant]
     Route: 065
  15. ALLEGRA [Concomitant]
     Route: 065
  16. PEPCID [Concomitant]
     Route: 048
  17. TOPROL-XL [Concomitant]
     Route: 065
     Dates: end: 20040802
  18. TOPROL-XL [Concomitant]
     Route: 065
     Dates: start: 20040802
  19. VASOTEC [Concomitant]
     Route: 048
     Dates: start: 20040802, end: 20050401
  20. VASOTEC [Concomitant]
     Route: 048
     Dates: start: 20050401
  21. VASOTEC [Concomitant]
     Route: 048
  22. ASPIRIN [Concomitant]
     Route: 065
  23. MOBIC [Concomitant]
     Route: 065
  24. AMOXICILLIN [Concomitant]
     Route: 065
  25. VIAGRA [Concomitant]
     Route: 065

REACTIONS (12)
  - BRADYCARDIA [None]
  - CHEST PAIN [None]
  - CORONARY ARTERY DISEASE [None]
  - DIZZINESS [None]
  - ESSENTIAL HYPERTENSION [None]
  - FATIGUE [None]
  - HYPOAESTHESIA [None]
  - HYPOTENSION [None]
  - MYOCARDIAL INFARCTION [None]
  - PAIN [None]
  - PARAESTHESIA [None]
  - VITREOUS DETACHMENT [None]
